FAERS Safety Report 22195137 (Version 1)
Quarter: 2023Q2

REPORT INFORMATION
  Report Type: Report from Study
  Country: US (occurrence: US)
  Receive Date: 20230411
  Receipt Date: 20230411
  Transmission Date: 20230722
  Serious: Yes (Other)
  Sender: FDA-Public Use
  Company Number: US-ARGENX-2023-ARGX-US001095

PATIENT

DRUGS (1)
  1. VYVGART [Suspect]
     Active Substance: EFGARTIGIMOD ALFA-FCAB
     Indication: Myasthenia gravis
     Dosage: 918 MG, 1/WEEK, FOR 4 WEEKS
     Route: 042
     Dates: start: 202301

REACTIONS (6)
  - Chronic kidney disease [Unknown]
  - Haemorrhage [Unknown]
  - Contusion [Unknown]
  - Swelling [Unknown]
  - Asthenia [Unknown]
  - Therapeutic response shortened [Unknown]
